FAERS Safety Report 18244351 (Version 1)
Quarter: 2020Q3

REPORT INFORMATION
  Report Type: Spontaneous
  Country: US (occurrence: US)
  Receive Date: 20200908
  Receipt Date: 20200908
  Transmission Date: 20201103
  Serious: Yes (Death, Other)
  Sender: FDA-Public Use
  Company Number: US-GILEAD-2020-0493949

PATIENT
  Age: 69 Year
  Sex: Male
  Weight: 72 kg

DRUGS (8)
  1. AZITHROMYCIN ANHYDROUS. [Concomitant]
     Active Substance: AZITHROMYCIN ANHYDROUS
  2. PLASMA [Concomitant]
     Active Substance: HUMAN PLASMA
  3. VITAMIN C [Concomitant]
     Active Substance: ASCORBIC ACID
     Dosage: UNK
     Route: 042
  4. LOVENOX [Concomitant]
     Active Substance: ENOXAPARIN SODIUM
  5. REMDESIVIR. [Suspect]
     Active Substance: REMDESIVIR
     Indication: COVID-19
     Dosage: UNK
     Route: 065
     Dates: start: 20200819, end: 20200828
  6. DEXAMETHASONE. [Concomitant]
     Active Substance: DEXAMETHASONE
  7. CEFTRIAXONE. [Concomitant]
     Active Substance: CEFTRIAXONE
  8. LASIX [Concomitant]
     Active Substance: FUROSEMIDE

REACTIONS (1)
  - Death [Fatal]

NARRATIVE: CASE EVENT DATE: 20200902
